FAERS Safety Report 25318954 (Version 1)
Quarter: 2025Q2

REPORT INFORMATION
  Report Type: Spontaneous
  Country: US (occurrence: None)
  Receive Date: 20250515
  Receipt Date: 20250515
  Transmission Date: 20250717
  Serious: No
  Sender: FDA-CTU
  Company Number: None

PATIENT
  Age: 59 Year
  Sex: Female

DRUGS (2)
  1. DIMETHYL FUMARATE [Suspect]
     Active Substance: DIMETHYL FUMARATE
  2. VUMERITY [Suspect]
     Active Substance: DIROXIMEL FUMARATE

REACTIONS (2)
  - Dyspepsia [None]
  - Flushing [None]

NARRATIVE: CASE EVENT DATE: 20250512
